FAERS Safety Report 7488571-2 (Version None)
Quarter: 2011Q2

REPORT INFORMATION
  Report Type: 
  Country: None (occurrence: None)
  Receive Date: 20110518
  Receipt Date: 20091008
  Transmission Date: 20111010
  Serious: Yes (Hospitalization, Other)
  Sender: FDA-Public Use
  Company Number: US-BAYER-200935536NA

PATIENT
  Age: 70 Year
  Sex: Female
  Weight: 65.306 kg

DRUGS (19)
  1. INSULIN [Concomitant]
  2. TRASYLOL [Suspect]
     Dosage: 100 ML, VIA CARDIOPULMONARY BYPASS
     Route: 042
     Dates: start: 20030403, end: 20030403
  3. MIRAPEX [Concomitant]
     Route: 048
  4. NITROGLYCERIN [Concomitant]
  5. RED BLOOD CELLS [Concomitant]
     Dosage: 4 U, UNK
     Route: 042
     Dates: start: 20030403
  6. STALEVO 100 [Concomitant]
     Dosage: 100 MG, UNK
     Route: 048
  7. HEPARIN [Concomitant]
  8. TRASYLOL [Suspect]
     Indication: MITRAL VALVE REPAIR
     Dosage: 1 ML, INITIAL TEST DOSE
     Route: 042
     Dates: start: 20030403, end: 20030403
  9. METHYLPHENIDATE [Concomitant]
     Dosage: 10 MG, UNK
     Route: 048
  10. KEPPRA [Concomitant]
     Dosage: 500 MG, UNK
     Route: 048
  11. TRIAMTERENE AND HYDROCHLOROTHIAZID [Concomitant]
     Dosage: 25/100MG, UNK
     Route: 048
  12. SUMANIROLE [Concomitant]
     Dosage: RESEARCH DRUG FOR PARKINSON'S
     Route: 048
     Dates: start: 20021001, end: 20030101
  13. ALBUMIN (HUMAN) [Concomitant]
     Route: 042
  14. TRASYLOL [Suspect]
     Indication: CARDIAC OPERATION
     Dosage: 100 ML, LOADING DOSE
     Route: 042
     Dates: start: 20030403, end: 20030403
  15. TRASYLOL [Suspect]
     Indication: AORTIC SURGERY
     Dosage: 25 ML, Q1HR
     Route: 042
     Dates: start: 20030403, end: 20030403
  16. ATENOLOL [Concomitant]
     Dosage: 50 MG, UNK
     Route: 048
  17. DIGOXIN [Concomitant]
     Dosage: 0.125 MG, UNK
     Route: 048
  18. COUMADIN [Concomitant]
     Route: 048
  19. PROTAMINE SULFATE [Concomitant]

REACTIONS (10)
  - RENAL FAILURE [None]
  - EMOTIONAL DISTRESS [None]
  - ANXIETY [None]
  - UNEVALUABLE EVENT [None]
  - FEAR [None]
  - RENAL INJURY [None]
  - PAIN [None]
  - INJURY [None]
  - STRESS [None]
  - RENAL IMPAIRMENT [None]
